FAERS Safety Report 6930958-8 (Version None)
Quarter: 2010Q3

REPORT INFORMATION
  Report Type: 
  Country: None (occurrence: None)
  Receive Date: 20100818
  Receipt Date: 20100805
  Transmission Date: 20110219
  Serious: Yes (Hospitalization)
  Sender: FDA-Public Use
  Company Number: US-WATSON-2010-10869

PATIENT
  Age: 74 Year
  Sex: Female

DRUGS (4)
  1. CARVEDILOL (WATSON LABORATORIES) [Suspect]
     Indication: PRODUCT USED FOR UNKNOWN INDICATION
     Dosage: UNK
  2. CITALOPRAM HYDROBROMIDE [Suspect]
     Indication: PRODUCT USED FOR UNKNOWN INDICATION
     Dosage: UNK
  3. FENTANYL-25 [Suspect]
     Indication: PAIN
     Dosage: 25 UG, STOPPED 3 DAYS PRIOR
     Route: 062
  4. ONDANSETRON [Suspect]
     Indication: NAUSEA
     Dosage: 4 MG, UNKNOWN
     Route: 042

REACTIONS (6)
  - ATRIOVENTRICULAR BLOCK FIRST DEGREE [None]
  - BRADYCARDIA [None]
  - ELECTROCARDIOGRAM QT PROLONGED [None]
  - HYPOKALAEMIA [None]
  - HYPOMAGNESAEMIA [None]
  - TORSADE DE POINTES [None]
